FAERS Safety Report 7738850-6 (Version None)
Quarter: 2011Q3

REPORT INFORMATION
  Report Type: 
  Country: None (occurrence: None)
  Receive Date: 20110909
  Receipt Date: 20110830
  Transmission Date: 20111222
  Serious: Yes (Hospitalization)
  Sender: FDA-Public Use
  Company Number: US-BIOGENIDEC-2011BI030760

PATIENT
  Sex: Female

DRUGS (2)
  1. TYSABRI [Suspect]
     Indication: MULTIPLE SCLEROSIS
     Route: 042
     Dates: start: 20091125, end: 20100106
  2. TYSABRI [Suspect]
     Route: 042
     Dates: start: 20110208, end: 20110308

REACTIONS (6)
  - INCONTINENCE [None]
  - MEMORY IMPAIRMENT [None]
  - URINARY TRACT INFECTION [None]
  - UROSEPSIS [None]
  - CORONARY ARTERY OCCLUSION [None]
  - URINARY RETENTION [None]
